FAERS Safety Report 14766818 (Version 1)
Quarter: 2018Q2

REPORT INFORMATION
  Report Type: Report from Study
  Country: CA (occurrence: CA)
  Receive Date: 20180417
  Receipt Date: 20180417
  Transmission Date: 20180711
  Serious: Yes (Other)
  Sender: FDA-Public Use
  Company Number: CA-ROCHE-ITM201503IM012833

PATIENT
  Age: 59 Year
  Sex: Female
  Weight: 77 kg

DRUGS (17)
  1. ATIVAN [Concomitant]
     Active Substance: LORAZEPAM
  2. HERCEPTIN [Suspect]
     Active Substance: TRASTUZUMAB
     Indication: BREAST CANCER
     Route: 065
  3. ESOMEPRAZOLE [Concomitant]
     Active Substance: ESOMEPRAZOLE
  4. TAMOXIFEN [Concomitant]
     Active Substance: TAMOXIFEN
  5. ESBRIET [Suspect]
     Active Substance: PIRFENIDONE
     Indication: IDIOPATHIC PULMONARY FIBROSIS
     Route: 048
     Dates: start: 20140521
  6. ESBRIET [Suspect]
     Active Substance: PIRFENIDONE
     Route: 048
     Dates: start: 20160604
  7. CARBOCAL [Concomitant]
     Active Substance: CALCIUM CARBONATE
  8. HCTZ [Concomitant]
     Active Substance: HYDROCHLOROTHIAZIDE
  9. NEXIUM [Concomitant]
     Active Substance: ESOMEPRAZOLE MAGNESIUM
  10. FERROUS SULFATE. [Concomitant]
     Active Substance: FERROUS SULFATE
  11. AZATHIOPRINE. [Concomitant]
     Active Substance: AZATHIOPRINE
  12. PREDNISONE. [Concomitant]
     Active Substance: PREDNISONE
  13. ESBRIET [Suspect]
     Active Substance: PIRFENIDONE
     Route: 048
  14. RISEDRONATE [Concomitant]
     Active Substance: RISEDRONATE SODIUM
  15. ESBRIET [Suspect]
     Active Substance: PIRFENIDONE
     Route: 048
     Dates: start: 20160528
  16. ESBRIET [Suspect]
     Active Substance: PIRFENIDONE
     Route: 048
  17. BIAXIN [Concomitant]
     Active Substance: CLARITHROMYCIN

REACTIONS (23)
  - Productive cough [Not Recovered/Not Resolved]
  - Skin exfoliation [Recovering/Resolving]
  - Pulmonary hypertension [Unknown]
  - Aortic dilatation [Unknown]
  - Fatigue [Not Recovered/Not Resolved]
  - Diarrhoea [Not Recovered/Not Resolved]
  - Synovial cyst [Unknown]
  - Hot flush [Unknown]
  - Hyperhidrosis [Unknown]
  - Rash erythematous [Unknown]
  - Weight decreased [Unknown]
  - Sleep disorder [Not Recovered/Not Resolved]
  - Nasopharyngitis [Not Recovered/Not Resolved]
  - Carbon monoxide diffusing capacity decreased [Unknown]
  - Organising pneumonia [Unknown]
  - Dry skin [Recovering/Resolving]
  - Nausea [Unknown]
  - Nausea [Unknown]
  - Middle insomnia [Not Recovered/Not Resolved]
  - Pulmonary function test abnormal [Unknown]
  - Erythema [Recovering/Resolving]
  - Oxygen saturation decreased [Unknown]
  - Cushingoid [Unknown]

NARRATIVE: CASE EVENT DATE: 20140524
